FAERS Safety Report 9626971 (Version 4)
Quarter: 2014Q2

REPORT INFORMATION
  Report Type: Report from Study
  Country: NL (occurrence: NL)
  Receive Date: 20131016
  Receipt Date: 20140403
  Transmission Date: 20141212
  Serious: Yes (Hospitalization, Other)
  Sender: FDA-Public Use
  Company Number: NL-CELGENEUS-114-50794-13100577

PATIENT
  Age: 70 Year
  Sex: Female
  Weight: 75.5 kg

DRUGS (6)
  1. VIDAZA [Suspect]
     Dosage: 130 MILLIGRAM
     Route: 058
     Dates: start: 20131120, end: 20131126
  2. VIDAZA [Suspect]
     Dosage: 130 MILLIGRAM
     Route: 058
     Dates: start: 20131218, end: 20131224
  3. VIDAZA [Suspect]
     Dosage: 130 MILLIGRAM
     Route: 058
     Dates: start: 20140115
  4. FOLIC ACID [Concomitant]
     Indication: PRODUCT USED FOR UNKNOWN INDICATION
     Route: 065
     Dates: start: 20140129
  5. VIDAZA [Suspect]
     Indication: ACUTE MYELOID LEUKAEMIA
     Dosage: 130 MILLIGRAM
     Route: 058
     Dates: start: 20130925, end: 20131001
  6. VIDAZA [Suspect]
     Dosage: 130 MILLIGRAM
     Route: 058
     Dates: start: 20131023, end: 20131029

REACTIONS (21)
  - Febrile neutropenia [Recovered/Resolved]
  - Pulmonary mass [Not Recovered/Not Resolved]
  - Febrile neutropenia [Recovering/Resolving]
  - Urinary tract infection [Recovered/Resolved]
  - Nausea [Recovered/Resolved]
  - Haematoma [Recovered/Resolved]
  - Injection site reaction [Recovered/Resolved]
  - Epistaxis [Recovered/Resolved]
  - Oral disorder [Recovered/Resolved]
  - Atrial flutter [Recovered/Resolved]
  - Blood blister [Not Recovered/Not Resolved]
  - Injection site reaction [Recovered/Resolved]
  - Constipation [Recovered/Resolved]
  - Haematoma [Recovered/Resolved]
  - Petechiae [Recovered/Resolved]
  - Urinary tract infection [Recovered/Resolved]
  - Pain in extremity [Not Recovered/Not Resolved]
  - Pyrexia [Recovered/Resolved]
  - Pruritus [Recovered/Resolved]
  - Injection site reaction [Recovered/Resolved]
  - Urinary tract infection [Recovered/Resolved]
